FAERS Safety Report 5837837-8 (Version None)
Quarter: 2008Q3

REPORT INFORMATION
  Report Type: 
  Country: None (occurrence: None)
  Receive Date: 20080808
  Receipt Date: 20080226
  Transmission Date: 20090109
  Serious: No
  Sender: FDA-Public Use
  Company Number: A0696559A

PATIENT
  Age: 59 Year
  Sex: Female

DRUGS (3)
  1. PAXIL CR [Suspect]
     Indication: MULTIPLE SCLEROSIS
     Dosage: 12.5MG PER DAY
     Route: 048
  2. WELLBUTRIN XL [Suspect]
     Indication: MULTIPLE SCLEROSIS
     Dosage: 150MG PER DAY
     Route: 048
     Dates: start: 20040501, end: 20071018
  3. INDERAL [Concomitant]

REACTIONS (5)
  - DIZZINESS [None]
  - DRUG INEFFECTIVE [None]
  - PHARMACEUTICAL PRODUCT COMPLAINT [None]
  - SOMNOLENCE [None]
  - THERAPEUTIC RESPONSE UNEXPECTED [None]
